FAERS Safety Report 4410008-8 (Version None)
Quarter: 2004Q3

REPORT INFORMATION
  Report Type: 
  Country: None (occurrence: None)
  Receive Date: 20040728
  Receipt Date: 20040716
  Transmission Date: 20050211
  Serious: Yes (Hospitalization)
  Sender: FDA-Public Use
  Company Number: US-BRISTOL-MYERS SQUIBB COMPANY-12643581

PATIENT
  Age: 77 Year
  Sex: Female
  Weight: 63 kg

DRUGS (12)
  1. COUMADIN [Suspect]
     Indication: ANTICOAGULANT THERAPY
     Dosage: STOPPED 31-MAY-2004, RE-INITIATED AFTER DISCHARGE DATE (DATE UNKNOWN) AT 2MG/D
  2. MEMANTINE HCL [Interacting]
     Indication: DEMENTIA ALZHEIMER'S TYPE
     Route: 048
     Dates: start: 20040525, end: 20040602
  3. DARVOCET [Concomitant]
     Dates: start: 20040525
  4. ARICEPT [Concomitant]
  5. TYLOX [Concomitant]
     Dosage: 2 TABLETS DAILY
     Dates: end: 20040525
  6. MIACALCIN [Concomitant]
     Dosage: 1 PUFF DAILY
     Dates: start: 20040525
  7. CLONIDINE HCL [Concomitant]
  8. ATIVAN [Concomitant]
  9. ELAVIL [Concomitant]
  10. DYAZIDE [Concomitant]
  11. PAXIL CR [Concomitant]
  12. TOPROL-XL [Concomitant]

REACTIONS (5)
  - COAGULATION TIME PROLONGED [None]
  - DRUG INTERACTION [None]
  - EXCORIATION [None]
  - FALL [None]
  - WOUND HAEMORRHAGE [None]
